FAERS Safety Report 9473571 (Version 2)
Quarter: 2013Q4

REPORT INFORMATION
  Report Type: Spontaneous
  Country: US (occurrence: US)
  Receive Date: 20130823
  Receipt Date: 20131017
  Transmission Date: 20140711
  Serious: No
  Sender: FDA-Public Use
  Company Number: US-UCBSA-095861

PATIENT
  Age: 62 Year
  Sex: Female
  Weight: 77.11 kg

DRUGS (8)
  1. CIMZIA [Suspect]
     Indication: CROHN^S DISEASE
     Route: 058
     Dates: start: 201302
  2. IRON [Concomitant]
     Dosage: DAILY
  3. NEXIUM [Concomitant]
     Indication: GASTROOESOPHAGEAL REFLUX DISEASE
     Route: 048
  4. LORATIDINE [Concomitant]
     Indication: HYPERSENSITIVITY
     Route: 048
  5. PENTASA [Concomitant]
     Dosage: 500 MG X 4,
  6. VENTOLIN [Concomitant]
     Indication: ASTHMA
     Dosage: INHALER
     Route: 055
  7. HYDROXYCHLOROQUINE [Concomitant]
     Route: 048
  8. COMBIGAN [Concomitant]
     Route: 047

REACTIONS (1)
  - Ophthalmic herpes simplex [Recovered/Resolved]
